FAERS Safety Report 22836808 (Version 5)
Quarter: 2023Q4

REPORT INFORMATION
  Report Type: Report from Study
  Country: US (occurrence: US)
  Receive Date: 20230818
  Receipt Date: 20231215
  Transmission Date: 20240110
  Serious: Yes (Other)
  Sender: FDA-Public Use
  Company Number: US-002147023-NVSC2023US179510

PATIENT
  Sex: Female

DRUGS (1)
  1. KESIMPTA [Suspect]
     Active Substance: OFATUMUMAB
     Indication: Relapsing multiple sclerosis
     Dosage: 20 MG, QMO
     Route: 058
     Dates: start: 20230731

REACTIONS (9)
  - Multiple sclerosis relapse [Unknown]
  - Optic neuritis [Unknown]
  - Dizziness [Unknown]
  - Eye pain [Unknown]
  - Visual impairment [Unknown]
  - Gait disturbance [Unknown]
  - Fatigue [Unknown]
  - Headache [Unknown]
  - Brain fog [Unknown]
